FAERS Safety Report 12834389 (Version 2)
Quarter: 2016Q4

REPORT INFORMATION
  Report Type: Spontaneous
  Country: US (occurrence: US)
  Receive Date: 20161010
  Receipt Date: 20161010
  Transmission Date: 20170207
  Serious: No
  Sender: FDA-Public Use
  Company Number: US-ASTRAZENECA-2016SF03989

PATIENT
  Age: 28602 Day
  Sex: Female
  Weight: 83.9 kg

DRUGS (4)
  1. THYRONINE [Concomitant]
     Indication: PROPHYLAXIS
     Route: 048
  2. BYDUREON [Suspect]
     Active Substance: EXENATIDE
     Indication: TYPE 2 DIABETES MELLITUS
     Route: 058
  3. SIMVASTATIN. [Concomitant]
     Active Substance: SIMVASTATIN
     Indication: PROPHYLAXIS
     Route: 048
  4. LISINOPRIL. [Suspect]
     Active Substance: LISINOPRIL
     Indication: PROPHYLAXIS
     Route: 048

REACTIONS (3)
  - Intentional device misuse [Unknown]
  - Diabetes mellitus [Unknown]
  - Device malfunction [Unknown]

NARRATIVE: CASE EVENT DATE: 20160928
